FAERS Safety Report 5599548-6 (Version None)
Quarter: 2008Q1

REPORT INFORMATION
  Report Type: 
  Country: None (occurrence: None)
  Receive Date: 20080117
  Receipt Date: 20080105
  Transmission Date: 20080703
  Serious: Yes (Life-Threatening, Hospitalization)
  Sender: FDA-Public Use
  Company Number: ADE2008-0098

PATIENT
  Age: 39 Year
  Sex: Male

DRUGS (4)
  1. METFORMIN HYDROCHLORIDE [Suspect]
     Dosage: 650 MG
  2. AMLODIPINE BESYLATE [Suspect]
     Dosage: 280MG
  3. ASPIRIN [Suspect]
     Dosage: 975MG
  4. DOXAZOSIN MESYLATE [Suspect]
     Dosage: 112MG

REACTIONS (2)
  - BLOOD PRESSURE DECREASED [None]
  - HAEMODIALYSIS [None]
